FAERS Safety Report 10277191 (Version 1)
Quarter: 2014Q3

REPORT INFORMATION
  Report Type: Spontaneous
  Country: BR (occurrence: BR)
  Receive Date: 20140703
  Receipt Date: 20140703
  Transmission Date: 20150326
  Serious: Yes (Hospitalization, Other)
  Sender: FDA-Public Use
  Company Number: BR-ABBVIE-14P-020-1255881-00

PATIENT
  Age: 39 Year
  Sex: Female
  Weight: 71.03 kg

DRUGS (1)
  1. DEPAKENE [Suspect]
     Active Substance: VALPROIC ACID
     Indication: CONVULSION
     Dosage: PRESCRIBED DAILY DOSE:3 CAPSULES, TOOK ONLY 2 CAPSULES: DAILY DOSE: 500 MG
     Route: 048
     Dates: start: 200911

REACTIONS (6)
  - Delirium [Unknown]
  - Incorrect dose administered [Unknown]
  - Convulsion [Recovered/Resolved]
  - Product physical issue [Unknown]
  - Oral discomfort [Recovered/Resolved]
  - Sedation [Unknown]

NARRATIVE: CASE EVENT DATE: 2014
